FAERS Safety Report 18387254 (Version 3)
Quarter: 2020Q4

REPORT INFORMATION
  Report Type: Report from Study
  Country: ES (occurrence: ES)
  Receive Date: 20201015
  Receipt Date: 20201026
  Transmission Date: 20210114
  Serious: No
  Sender: FDA-Public Use
  Company Number: ES-KYOWAKIRIN-2020BKK016389

PATIENT

DRUGS (1)
  1. BUROSUMAB [Suspect]
     Active Substance: BUROSUMAB
     Indication: HEREDITARY HYPOPHOSPHATAEMIC RICKETS
     Dosage: 20 MG
     Route: 065
     Dates: start: 2020

REACTIONS (1)
  - SARS-CoV-2 test negative [Unknown]

NARRATIVE: CASE EVENT DATE: 2020
